FAERS Safety Report 7367099-4 (Version None)
Quarter: 2011Q1

REPORT INFORMATION
  Report Type: 
  Country: None (occurrence: None)
  Receive Date: 20110322
  Receipt Date: 20110308
  Transmission Date: 20110831
  Serious: Yes (Hospitalization)
  Sender: FDA-Public Use
  Company Number: US-JNJFOC-20060203175

PATIENT
  Sex: Female
  Weight: 95 kg

DRUGS (3)
  1. CIPROFLOXACIN [Concomitant]
  2. INFLIXIMAB [Suspect]
     Indication: DRUG DEPENDENCE
     Dosage: TOTAL 4 DOSES
     Route: 042
  3. INFLIXIMAB [Suspect]
     Indication: COLITIS ULCERATIVE
     Dosage: TOTAL 4 DOSES
     Route: 042

REACTIONS (6)
  - HAEMORRHOIDS [None]
  - COLITIS ULCERATIVE [None]
  - PROCTALGIA [None]
  - POUCHITIS [None]
  - ELECTIVE SURGERY [None]
  - ABDOMINAL PAIN [None]
